FAERS Safety Report 4661886-9 (Version None)
Quarter: 2005Q2

REPORT INFORMATION
  Report Type: 
  Country: None (occurrence: None)
  Receive Date: 20050513
  Receipt Date: 20050502
  Transmission Date: 20051028
  Serious: Yes (Hospitalization, Other)
  Sender: FDA-Public Use
  Company Number: US-MERCK-0505USA00329

PATIENT
  Age: 75 Year
  Sex: Male

DRUGS (3)
  1. ZOCOR [Suspect]
     Indication: LOW DENSITY LIPOPROTEIN INCREASED
     Route: 048
     Dates: start: 19970101, end: 20050427
  2. NIACIN [Concomitant]
     Route: 065
  3. GEMFIBROZIL [Concomitant]
     Route: 065
     Dates: start: 20050404, end: 20050401

REACTIONS (6)
  - ALANINE AMINOTRANSFERASE INCREASED [None]
  - ASPARTATE AMINOTRANSFERASE INCREASED [None]
  - BLOOD CREATINE PHOSPHOKINASE INCREASED [None]
  - IMMOBILE [None]
  - MUSCULAR WEAKNESS [None]
  - PAIN IN EXTREMITY [None]
